FAERS Safety Report 9134847 (Version 1)
Quarter: 2013Q1

REPORT INFORMATION
  Report Type: Spontaneous
  Country: US (occurrence: US)
  Receive Date: 20130304
  Receipt Date: 20130304
  Transmission Date: 20140127
  Serious: Yes (Hospitalization, Other)
  Sender: FDA-Public Use
  Company Number: US-009507513-1302USA009123

PATIENT
  Sex: Female

DRUGS (3)
  1. LOSARTAN POTASSIUM [Suspect]
     Dosage: UNK
     Route: 048
  2. PROTONIX [Suspect]
     Indication: IRRITABLE BOWEL SYNDROME
     Dosage: UNK
     Dates: start: 20110609, end: 20121201
  3. LIPITOR [Suspect]

REACTIONS (6)
  - Gastric infection [Unknown]
  - Cardiac disorder [Unknown]
  - Hypoacusis [Unknown]
  - Patient isolation [Unknown]
  - Off label use [Unknown]
  - Adverse event [Unknown]
